FAERS Safety Report 9853293 (Version 1)
Quarter: 2014Q1

REPORT INFORMATION
  Report Type: Report from Study
  Country: GB (occurrence: GB)
  Receive Date: 20140129
  Receipt Date: 20140129
  Transmission Date: 20141002
  Serious: Yes (Death, Hospitalization)
  Sender: FDA-Public Use
  Company Number: GB-ABBVIE-14P-167-1194264-00

PATIENT
  Age: 70 Year
  Sex: Male
  Weight: 142 kg

DRUGS (1)
  1. HUMIRA [Suspect]
     Indication: PSORIASIS
     Dates: start: 20100701, end: 20101012

REACTIONS (8)
  - Multi-organ failure [Fatal]
  - Lymphoplasmacytoid lymphoma/immunocytoma [Unknown]
  - Oropharyngeal pain [Unknown]
  - Pyrexia [Unknown]
  - Dysphagia [Unknown]
  - Chest pain [Unknown]
  - Non-Hodgkin^s lymphoma [Fatal]
  - Sepsis [Fatal]
